FAERS Safety Report 14281403 (Version 3)
Quarter: 2019Q1

REPORT INFORMATION
  Report Type: Spontaneous
  Country: US (occurrence: US)
  Receive Date: 20171213
  Receipt Date: 20190131
  Transmission Date: 20190417
  Serious: No
  Sender: FDA-Public Use
  Company Number: US-PFIZER INC-2017533256

PATIENT
  Age: 73 Year
  Sex: Female

DRUGS (1)
  1. XANAX [Suspect]
     Active Substance: ALPRAZOLAM
     Dosage: UNK, DAILY ^QD FOR 30 DAYS^
     Route: 048
     Dates: start: 19970101, end: 19970601

REACTIONS (2)
  - Rash [Recovered/Resolved]
  - Drug hypersensitivity [Unknown]
